FAERS Safety Report 16387786 (Version 1)
Quarter: 2019Q2

REPORT INFORMATION
  Report Type: Spontaneous
  Country: JP (occurrence: JP)
  Receive Date: 20190604
  Receipt Date: 20190604
  Transmission Date: 20190711
  Serious: Yes (Hospitalization, Other)
  Sender: FDA-Public Use
  Company Number: JP-009507513-1905JPN003611J

PATIENT
  Age: 72 Year
  Sex: Female

DRUGS (1)
  1. MENESIT TABLETS - 100 [Suspect]
     Active Substance: CARBIDOPA\LEVODOPA
     Dosage: 600 MILLIGRAM
     Route: 050

REACTIONS (3)
  - Product use issue [Unknown]
  - Sepsis [Unknown]
  - Pneumonia aspiration [Unknown]
